FAERS Safety Report 4685587-6 (Version None)
Quarter: 2005Q2

REPORT INFORMATION
  Report Type: 
  Country: None (occurrence: None)
  Receive Date: 20050608
  Receipt Date: 20050530
  Transmission Date: 20051028
  Serious: Yes (Other)
  Sender: FDA-Public Use
  Company Number: 2005-05-0885

PATIENT
  Age: 63 Year
  Sex: Male

DRUGS (1)
  1. GENTAMICIN [Suspect]
     Indication: INFECTION PROPHYLAXIS
     Dosage: 1-2 ML SUBCONJUNC; ONCE
     Route: 057

REACTIONS (8)
  - EYE OPERATION COMPLICATION [None]
  - INFLAMMATION [None]
  - RETINAL DETACHMENT [None]
  - RETINAL INFARCTION [None]
  - RETINOPATHY PROLIFERATIVE [None]
  - SCLERAL THINNING [None]
  - STAPHYLOMA [None]
  - UVEAL PROLAPSE [None]
